FAERS Safety Report 7430039-3 (Version None)
Quarter: 2011Q2

REPORT INFORMATION
  Report Type: 
  Country: None (occurrence: None)
  Receive Date: 20110421
  Receipt Date: 20110414
  Transmission Date: 20111010
  Serious: Yes (Other)
  Sender: FDA-Public Use
  Company Number: NL-ABBOTT-11P-114-0719461-00

PATIENT
  Sex: Female
  Weight: 59 kg

DRUGS (12)
  1. DEPAKENE [Suspect]
     Indication: BIPOLAR DISORDER
     Dates: start: 20110214, end: 20110316
  2. REYATAZ [Suspect]
     Dates: start: 20110314, end: 20110316
  3. NORVIR [Suspect]
     Dates: start: 20110314, end: 20110316
  4. TAVEGYL [Suspect]
     Indication: RASH
     Dates: start: 20110313, end: 20110316
  5. TRUVADA [Suspect]
     Indication: HIV INFECTION
  6. REYATAZ [Suspect]
     Indication: HIV INFECTION
  7. OXAZEPAM [Concomitant]
     Indication: PRODUCT USED FOR UNKNOWN INDICATION
     Dosage: 10 MG TID AND 10MG PRN
     Dates: start: 20110204
  8. CISORDINOL [Concomitant]
     Indication: PRODUCT USED FOR UNKNOWN INDICATION
     Dates: start: 20110228, end: 20110316
  9. NORVIR [Suspect]
     Indication: HIV INFECTION
  10. CALCI CHEW [Concomitant]
     Indication: PRODUCT USED FOR UNKNOWN INDICATION
     Dates: start: 20110224
  11. TRUVADA [Suspect]
     Dates: start: 20110314, end: 20110316
  12. TEMAZEPAM [Concomitant]
     Indication: PRODUCT USED FOR UNKNOWN INDICATION
     Dates: start: 20110224

REACTIONS (10)
  - PRURITUS [None]
  - PYREXIA [None]
  - EOSINOPHILIA [None]
  - RASH GENERALISED [None]
  - EXANTHEMA SUBITUM [None]
  - HEPATIC ENZYME ABNORMAL [None]
  - ERYTHEMA [None]
  - FACE OEDEMA [None]
  - DRUG RASH WITH EOSINOPHILIA AND SYSTEMIC SYMPTOMS [None]
  - GINGIVAL BLEEDING [None]
